FAERS Safety Report 4985794-9 (Version None)
Quarter: 2006Q2

REPORT INFORMATION
  Report Type: 
  Country: None (occurrence: None)
  Receive Date: 20060428
  Receipt Date: 20050316
  Transmission Date: 20061013
  Serious: No
  Sender: FDA-Public Use
  Company Number: US-GLAXOSMITHKLINE-A0550040A

PATIENT
  Age: 23 Year
  Sex: Female

DRUGS (3)
  1. AMERGE [Suspect]
     Dosage: 2.5MG PER DAY
     Route: 048
     Dates: start: 20050309, end: 20050315
  2. IMITREX [Suspect]
     Route: 058
  3. ZOLOFT [Concomitant]

REACTIONS (12)
  - BALANCE DISORDER [None]
  - CHEST DISCOMFORT [None]
  - DIZZINESS [None]
  - DRUG INEFFECTIVE [None]
  - FACIAL PAIN [None]
  - FATIGUE [None]
  - HEADACHE [None]
  - HYPERSOMNIA [None]
  - MIGRAINE [None]
  - MUSCLE TIGHTNESS [None]
  - PALLOR [None]
  - SKIN DISCOLOURATION [None]
